FAERS Safety Report 9228331 (Version 2)
Quarter: 2013Q2

REPORT INFORMATION
  Report Type: Spontaneous
  Country: JP (occurrence: JP)
  Receive Date: 20130412
  Receipt Date: 20130524
  Transmission Date: 20140414
  Serious: Yes (Other)
  Sender: FDA-Public Use
  Company Number: JP-PFIZER INC-2013112162

PATIENT
  Age: 50 Year
  Sex: Female

DRUGS (4)
  1. AZULFIDINE EN [Suspect]
     Indication: RHEUMATOID ARTHRITIS
     Dosage: 500 MG, 1X/DAY
     Route: 048
     Dates: start: 20110928, end: 20111004
  2. AZASURUFAN [Suspect]
     Indication: RHEUMATOID ARTHRITIS
     Dosage: 500 MG, 2X/DAY
     Route: 048
     Dates: start: 20111005, end: 20111020
  3. TROXSIN [Concomitant]
     Dosage: 100 MG, 1X/DAY
     Route: 048
     Dates: start: 201109, end: 20111004
  4. TROXSIN [Concomitant]
     Dosage: 100 MG, 2X/DAY
     Route: 048
     Dates: start: 20111005, end: 20111020

REACTIONS (4)
  - Drug eruption [Unknown]
  - Liver disorder [Unknown]
  - Alopecia [Unknown]
  - Pyrexia [Unknown]
